FAERS Safety Report 6405907-1 (Version None)
Quarter: 2009Q4

REPORT INFORMATION
  Report Type: 
  Country: None (occurrence: None)
  Receive Date: 20091019
  Receipt Date: 20091008
  Transmission Date: 20100525
  Serious: Yes (Hospitalization)
  Sender: FDA-Public Use
  Company Number: US-JNJFOC-20090903274

PATIENT
  Sex: Female
  Weight: 32.93 kg

DRUGS (14)
  1. REMICADE [Suspect]
     Indication: INFLAMMATORY BOWEL DISEASE
     Route: 042
  2. 5-AMINOSALICYLIC ACID [Concomitant]
     Route: 048
  3. FISH OIL [Concomitant]
  4. OMEGA 3 FATTY ACID [Concomitant]
  5. NYSTATIN [Concomitant]
  6. ZINC SULFATE [Concomitant]
  7. KEFLEX [Concomitant]
  8. MULTI-VITAMINS [Concomitant]
  9. KETOCONAZOLE [Concomitant]
  10. SLOW FE [Concomitant]
  11. ANTIBIOTIC NOS [Concomitant]
  12. KENALOG [Concomitant]
  13. ACETAMINOPHEN W/ CODEINE TAB [Concomitant]
  14. LEVAQUIN [Concomitant]

REACTIONS (1)
  - SMALL INTESTINAL OBSTRUCTION [None]
